FAERS Safety Report 9207562 (Version 1)
Quarter: 2013Q1

REPORT INFORMATION
  Report Type: Spontaneous
  Country: US (occurrence: None)
  Receive Date: 20120718
  Receipt Date: 20120718
  Transmission Date: 20140127
  Serious: Yes (Disabling)
  Sender: FDA-Public Use
  Company Number: SP03771

PATIENT
  Age: 71 Year
  Sex: Male
  Weight: 74.39 kg

DRUGS (4)
  1. XIFAXAN [Suspect]
     Indication: ABDOMINAL DISTENSION
     Dosage: 1100 MG (550 MG, 2 IN 1 D) , ORAL
     Route: 048
     Dates: start: 201105, end: 201105
  2. XIFAXAN [Suspect]
     Indication: HYPERTENSION
     Dosage: 1100 MG (550 MG, 2 IN 1 D) , ORAL
     Route: 048
     Dates: start: 201105, end: 201105
  3. BENAZEPRIL [Concomitant]
  4. PRAVASTATIN [Concomitant]

REACTIONS (2)
  - Diarrhoea [None]
  - Exfoliative rash [None]
